FAERS Safety Report 24584729 (Version 2)
Quarter: 2024Q4

REPORT INFORMATION
  Report Type: Report from Study
  Country: US (occurrence: US)
  Receive Date: 20241106
  Receipt Date: 20241120
  Transmission Date: 20250114
  Serious: Yes (Death)
  Sender: DAIICHI
  Company Number: US-DSJP-DS-2024-100276-US

PATIENT
  Age: 20 Year
  Sex: Male

DRUGS (3)
  1. ENHERTU [Suspect]
     Active Substance: FAM-TRASTUZUMAB DERUXTECAN-NXKI
     Indication: Malignant connective tissue neoplasm
     Dosage: 750 MG, ONCE EVERY 3 WK
     Route: 042
     Dates: start: 20240405, end: 20240405
  2. ENHERTU [Suspect]
     Active Substance: FAM-TRASTUZUMAB DERUXTECAN-NXKI
     Dosage: 630 MG, ONCE EVERY 3 WK
     Route: 042
     Dates: start: 20240405, end: 20240405
  3. ENHERTU [Suspect]
     Active Substance: FAM-TRASTUZUMAB DERUXTECAN-NXKI
     Dosage: 630 MG, ONCE EVERY 3 WK
     Route: 042
     Dates: start: 20240917, end: 20240917

REACTIONS (2)
  - Death [Fatal]
  - Therapy change [Unknown]

NARRATIVE: CASE EVENT DATE: 20240917
